FAERS Safety Report 5884417-4 (Version None)
Quarter: 2008Q3

REPORT INFORMATION
  Report Type: 
  Country: None (occurrence: None)
  Receive Date: 20080915
  Receipt Date: 20080903
  Transmission Date: 20090109
  Serious: Yes (Death)
  Sender: FDA-Public Use
  Company Number: US-PFIZER INC-2008073619

PATIENT
  Sex: Male

DRUGS (1)
  1. SUTENT [Suspect]
     Dosage: DAILY DOSE:50MG-FREQ:1 PER DAY FOR 28 DAYS/ OFF 14 DAYS
     Route: 048

REACTIONS (1)
  - DEATH [None]
